FAERS Safety Report 14694794 (Version 1)
Quarter: 2018Q1

REPORT INFORMATION
  Report Type: Other
  Country: JP (occurrence: JP)
  Receive Date: 20180329
  Receipt Date: 20180329
  Transmission Date: 20180509
  Serious: Yes (Life-Threatening, Hospitalization)
  Sender: FDA-Public Use
  Company Number: JP-NOSTRUM LABORATORIES, INC.-2044772

PATIENT
  Age: 73 Year
  Sex: Male

DRUGS (2)
  1. DAPSONE. [Suspect]
     Active Substance: DAPSONE
     Indication: NEURODERMATITIS
     Route: 048
  2. DAPSONE. [Suspect]
     Active Substance: DAPSONE
     Indication: RASH
     Route: 048

REACTIONS (3)
  - Hypersensitivity [Recovered/Resolved]
  - Respiratory failure [None]
  - Pneumonitis [Recovered/Resolved]
